FAERS Safety Report 9772041 (Version 1)
Quarter: 2013Q4

REPORT INFORMATION
  Report Type: Spontaneous
  Country: US (occurrence: None)
  Receive Date: 20131218
  Receipt Date: 20131218
  Transmission Date: 20140711
  Serious: Yes (Other)
  Sender: FDA-Public Use
  Company Number: None

PATIENT
  Age: 36 Year
  Sex: Female
  Weight: 68.04 kg

DRUGS (1)
  1. SUBOXONE [Suspect]
     Indication: DEPENDENCE
     Dosage: 2 FILMS ONCE PER DAY TAKEN UNDER THE TONGUE
     Dates: start: 20131115, end: 20131217

REACTIONS (4)
  - Tongue disorder [None]
  - Tongue discolouration [None]
  - Tongue oedema [None]
  - Oral pain [None]
